FAERS Safety Report 6082691-5 (Version None)
Quarter: 2009Q1

REPORT INFORMATION
  Report Type: 
  Country: None (occurrence: None)
  Receive Date: 20090218
  Receipt Date: 20090210
  Transmission Date: 20090719
  Serious: Yes (Hospitalization, Other)
  Sender: FDA-Public Use
  Company Number: PHHY2009FR04601

PATIENT
  Sex: Female

DRUGS (2)
  1. ZOMETA [Suspect]
     Dosage: 4 MG, QMO
     Route: 065
     Dates: start: 20040901, end: 20070401
  2. THALIDOMIDE [Suspect]
     Indication: MULTIPLE MYELOMA
     Dosage: 100 MG DAILY
     Route: 048
     Dates: start: 20050228

REACTIONS (14)
  - BALANCE DISORDER [None]
  - CELLULITIS [None]
  - CONDITION AGGRAVATED [None]
  - DENTAL CARIES [None]
  - INFECTION [None]
  - LESION EXCISION [None]
  - LYMPHADENOPATHY [None]
  - MUSCLE SPASMS [None]
  - ORAL DISORDER [None]
  - OSTEONECROSIS [None]
  - PAIN [None]
  - PERIODONTAL INFECTION [None]
  - POLYNEUROPATHY [None]
  - TOOTH MALFORMATION [None]
